FAERS Safety Report 8962998 (Version 2)
Quarter: 2013Q1

REPORT INFORMATION
  Report Type: Spontaneous
  Country: US (occurrence: US)
  Receive Date: 20121213
  Receipt Date: 20130118
  Transmission Date: 20140127
  Serious: No
  Sender: FDA-Public Use
  Company Number: US-009507513-1212USA004186

PATIENT
  Age: 22 Year
  Sex: Female
  Weight: 68.27 kg

DRUGS (3)
  1. IMPLANON [Suspect]
     Indication: CONTRACEPTION
     Dosage: 1 ROD FOR 3 YEAR USE ON LEFT ARM
     Dates: start: 20110531, end: 20121210
  2. ESTROGENS (UNSPECIFIED) [Concomitant]
     Dosage: 2 MG A DAY
  3. CELEXA [Concomitant]

REACTIONS (1)
  - Menorrhagia [Unknown]
